FAERS Safety Report 9485683 (Version 2)
Quarter: 2013Q3

REPORT INFORMATION
  Report Type: Spontaneous
  Country: AR (occurrence: AR)
  Receive Date: 20130829
  Receipt Date: 20130918
  Transmission Date: 20140515
  Serious: Yes (Other)
  Sender: FDA-Public Use
  Company Number: AR-AMGEN-ARGSP2013060395

PATIENT
  Age: 56 Year
  Sex: Female

DRUGS (2)
  1. ENBREL [Suspect]
     Indication: RHEUMATOID ARTHRITIS
     Dosage: 25 MG, 2X/WEEK
     Route: 065
     Dates: start: 20041101
  2. ATENOLOL [Concomitant]
     Dosage: UNK

REACTIONS (2)
  - Arthropathy [Recovered/Resolved]
  - Decreased immune responsiveness [Recovered/Resolved]
